FAERS Safety Report 5928452-6 (Version None)
Quarter: 2008Q4

REPORT INFORMATION
  Report Type: 
  Country: None (occurrence: None)
  Receive Date: 20081021
  Receipt Date: 20081008
  Transmission Date: 20090506
  Serious: Yes (Hospitalization, Disabling, Other)
  Sender: FDA-Public Use
  Company Number: WAES 0810CHN00010

PATIENT
  Age: 61 Year
  Sex: Male

DRUGS (6)
  1. COZAAR [Suspect]
     Indication: CARDIAC FAILURE CONGESTIVE
     Dosage: PO
     Route: 048
     Dates: start: 20040302
  2. AMBROXOL HYDROCHLORIDE [Concomitant]
  3. CEFUROXIME SODIUM [Concomitant]
  4. CHYMOTRYPSIN [Concomitant]
  5. ISOSORBIDE DINITRATE [Concomitant]
  6. MOXIFLOXACIN HYDROCHLORIDE [Concomitant]

REACTIONS (6)
  - AORTIC THROMBOSIS [None]
  - ARTERIAL THROMBOSIS [None]
  - HYPERHIDROSIS [None]
  - HYPOAESTHESIA [None]
  - INFECTION [None]
  - LEG AMPUTATION [None]
